FAERS Safety Report 10208736 (Version 2)
Quarter: 2014Q2

REPORT INFORMATION
  Report Type: Spontaneous
  Country: US (occurrence: US)
  Receive Date: 20140530
  Receipt Date: 20140530
  Transmission Date: 20141212
  Serious: No
  Sender: FDA-Public Use
  Company Number: US-ENDO PHARMACEUTICALS INC.-SPLN20120019

PATIENT
  Age: 4 Year
  Sex: Female

DRUGS (1)
  1. SUPPRELIN LA [Suspect]
     Indication: PRECOCIOUS PUBERTY
     Route: 058
     Dates: start: 20110811

REACTIONS (3)
  - Mood swings [Unknown]
  - Vaginal haemorrhage [Unknown]
  - Drug ineffective [Not Recovered/Not Resolved]
